FAERS Safety Report 5234591-8 (Version None)
Quarter: 2007Q1

REPORT INFORMATION
  Report Type: 
  Country: None (occurrence: None)
  Receive Date: 20070209
  Receipt Date: 20070131
  Transmission Date: 20070707
  Serious: Yes (Other)
  Sender: FDA-Public Use
  Company Number: US-JNJFOC-20070200334

PATIENT
  Age: 65 Year
  Sex: Female
  Weight: 83.92 kg

DRUGS (8)
  1. EXTRA STRENGTH TYLENOL [Suspect]
  2. EXTRA STRENGTH TYLENOL [Suspect]
     Indication: ARTHRALGIA
  3. LOTREL [Concomitant]
     Indication: HYPERTENSION
  4. OMEPRAZOLE [Concomitant]
     Indication: GASTROOESOPHAGEAL REFLUX DISEASE
  5. VITAMINS [Concomitant]
     Indication: GENERAL PHYSICAL CONDITION
  6. CALCIUM [Concomitant]
     Indication: GENERAL PHYSICAL CONDITION
  7. GARLIC PILLS [Concomitant]
     Indication: GENERAL PHYSICAL CONDITION
  8. VITAMIN B COMPLEX CAP [Concomitant]
     Indication: ROUTINE HEALTH MAINTENANCE

REACTIONS (4)
  - EXPIRED DRUG ADMINISTERED [None]
  - OCULAR DISCOMFORT [None]
  - VISION BLURRED [None]
  - VITREOUS FLOATERS [None]
